FAERS Safety Report 10070040 (Version 1)
Quarter: 2014Q2

REPORT INFORMATION
  Report Type: Spontaneous
  Country: US (occurrence: None)
  Receive Date: 20140409
  Receipt Date: 20140409
  Transmission Date: 20141212
  Serious: Yes (Other)
  Sender: FDA-Public Use
  Company Number: None

PATIENT
  Age: 36 Year
  Sex: Female

DRUGS (1)
  1. TECFIDERA 240 MG BIOGEN IDEC [Suspect]
     Indication: MULTIPLE SCLEROSIS
     Dosage: 1 TABLET BID ORAL
     Route: 048

REACTIONS (2)
  - Burning sensation [None]
  - Lung disorder [None]
